FAERS Safety Report 25934144 (Version 1)
Quarter: 2025Q4

REPORT INFORMATION
  Report Type: Spontaneous
  Country: US (occurrence: US)
  Receive Date: 20251017
  Receipt Date: 20251017
  Transmission Date: 20260117
  Serious: Yes (Other)
  Sender: AMGEN
  Company Number: US-AMGEN-USASP2025201543

PATIENT
  Age: 50 Year
  Sex: Male

DRUGS (3)
  1. ADALIMUMAB [Suspect]
     Active Substance: ADALIMUMAB
     Indication: Hidradenitis
     Dosage: UNK
     Route: 065
  2. DOXYCYCLINE [Concomitant]
     Active Substance: DOXYCYCLINE
     Indication: Hidradenitis
     Route: 065
  3. ERTAPENEM [Concomitant]
     Active Substance: ERTAPENEM
     Indication: Hidradenitis
     Route: 065

REACTIONS (3)
  - Cardiac failure [Unknown]
  - Yao syndrome [Unknown]
  - Therapy non-responder [Unknown]
